FAERS Safety Report 4517813-8 (Version None)
Quarter: 2004Q4

REPORT INFORMATION
  Report Type: 
  Country: None (occurrence: None)
  Receive Date: 20041201
  Receipt Date: 20041201
  Transmission Date: 20050328
  Serious: Yes (Life-Threatening, Hospitalization)
  Sender: FDA-Public Use
  Company Number: None

PATIENT
  Age: 74 Year
  Sex: Female
  Weight: 46.7205 kg

DRUGS (6)
  1. ETHYOL [Suspect]
     Indication: LUNG NEOPLASM MALIGNANT
     Dosage: 500 MG, WED/THURS SQ
     Route: 058
     Dates: start: 20040923
  2. ETHYOL [Suspect]
     Indication: LUNG NEOPLASM MALIGNANT
     Dosage: 500 MG, WED/THURS SQ
     Route: 058
     Dates: start: 20040929
  3. ETHYOL [Suspect]
     Indication: LUNG NEOPLASM MALIGNANT
     Dosage: 500 MG, WED/THURS SQ
     Route: 058
     Dates: start: 20040930
  4. ETHYOL [Suspect]
     Indication: LUNG NEOPLASM MALIGNANT
     Dosage: 500 MG, WED/THURS SQ
     Route: 058
     Dates: start: 20041006
  5. RADIATION [Concomitant]
  6. CHEMOTHERAPY [Concomitant]

REACTIONS (2)
  - ANAPHYLACTIC SHOCK [None]
  - THERAPY NON-RESPONDER [None]
